FAERS Safety Report 4659146-5 (Version None)
Quarter: 2005Q2

REPORT INFORMATION
  Report Type: 
  Country: None (occurrence: None)
  Receive Date: 20050502
  Receipt Date: 20050106
  Transmission Date: 20051028
  Serious: No
  Sender: FDA-Public Use
  Company Number: 200419587US

PATIENT
  Age: 59 Year
  Sex: Female

DRUGS (2)
  1. KETEK [Suspect]
     Indication: BRONCHITIS
     Dosage: 400 MG ONCE PO
     Route: 048
     Dates: start: 20041213, end: 20041213
  2. NAPROXEN SODIUM (ALEVE) [Concomitant]

REACTIONS (3)
  - HEADACHE [None]
  - MUSCLE SPASMS [None]
  - VOMITING PROJECTILE [None]
